FAERS Safety Report 8790888 (Version 1)
Quarter: 2012Q4

REPORT INFORMATION
  Report Type: Spontaneous
  Country: GB (occurrence: None)
  Receive Date: 20120907
  Receipt Date: 20120907
  Transmission Date: 20130627
  Serious: Yes (Hospitalization, Other)
  Sender: FDA-Public Use
  Company Number: GB-BANPHARM-20120026

PATIENT
  Age: 40 Year
  Sex: Male

DRUGS (4)
  1. IBUPROFEN [Suspect]
     Indication: GASTRIC DISORDER
     Route: 048
     Dates: start: 20120906, end: 20120906
  2. ALKA-SELTZER XS [Suspect]
     Indication: UPSET STOMACH
     Route: 048
     Dates: start: 20120906, end: 20120906
  3. WRAFTON HEALTH SALTS EFFERVESCENT POWDER - ACTIVE SUBSTANCE(S): CITRIC ACID, MAGNESIUM SULPHATE, SODIUM BICARBONATE [Suspect]
     Indication: GASTRIC DISORDER
     Dates: start: 20120906, end: 20120906
  4. OMEPRAZOLE [Concomitant]

REACTIONS (13)
  - Malaise [None]
  - Dizziness [None]
  - Hyperventilation [None]
  - Mobility decreased [None]
  - Hypoaesthesia [None]
  - Hypoaesthesia [None]
  - Hypoaesthesia [None]
  - Paraesthesia [None]
  - Quadriplegia [None]
  - Abdominal discomfort [None]
  - VIIth nerve paralysis [None]
  - Asthenia [None]
  - Dizziness [None]
